FAERS Safety Report 7578027-0 (Version None)
Quarter: 2011Q2

REPORT INFORMATION
  Report Type: 
  Country: None (occurrence: None)
  Receive Date: 20110628
  Receipt Date: 20110616
  Transmission Date: 20111010
  Serious: Yes (Hospitalization)
  Sender: FDA-Public Use
  Company Number: NL-ELI_LILLY_AND_COMPANY-NL201106004875

PATIENT
  Sex: Male
  Weight: 81.3 kg

DRUGS (7)
  1. SUCRALFATE [Concomitant]
     Indication: GASTRIC DISORDER
     Dosage: UNK
     Dates: start: 20030101
  2. SUSTANON                           /00418401/ [Concomitant]
     Indication: HYPOGONADISM
     Dosage: UNK
     Dates: start: 19950101
  3. SOMATROPIN [Suspect]
     Dosage: 0.3 MG, QD
     Route: 058
     Dates: start: 20020101
  4. FOSAMAX [Concomitant]
     Indication: OSTEOPENIA
     Dosage: UNK
     Dates: start: 20050101
  5. HYDROCORTISONE [Concomitant]
     Indication: ADRENAL DISORDER
     Dosage: UNK
     Dates: start: 19950101
  6. CALCICHEW-D3 [Concomitant]
     Indication: OSTEOPENIA
     Dosage: UNK
     Dates: start: 20050101
  7. LEVOTHYROXINE SODIUM [Concomitant]
     Indication: HYPOTHYROIDISM
     Dosage: UNK
     Dates: start: 19950101

REACTIONS (2)
  - ADDISON'S DISEASE [None]
  - PNEUMONIA [None]
